FAERS Safety Report 4737966-6 (Version None)
Quarter: 2005Q3

REPORT INFORMATION
  Report Type: 
  Country: None (occurrence: None)
  Receive Date: 20050809
  Receipt Date: 20040902
  Transmission Date: 20060218
  Serious: Yes (Other)
  Sender: FDA-Public Use
  Company Number: PHEH2004US09561

PATIENT
  Age: 68 Year
  Sex: Female

DRUGS (11)
  1. HERCEPTIN [Concomitant]
     Indication: BREAST CANCER
     Dosage: 220 G EVERY WEEK
  2. AROMASIN [Concomitant]
     Indication: BREAST CANCER
  3. ZOMETA [Suspect]
     Indication: METASTASES TO BONE
     Dosage: 4 MG, UNK
     Route: 042
     Dates: start: 20020529, end: 20040804
  4. ADRIAMYCIN PFS [Interacting]
     Indication: BREAST CANCER
     Dosage: 113 MG
     Route: 042
     Dates: start: 19990120, end: 19990323
  5. CYTOXAN [Concomitant]
     Indication: BREAST CANCER
     Dosage: 1134 MG, UNK
     Route: 042
     Dates: start: 19990120, end: 19990323
  6. TAXOL [Concomitant]
     Indication: BREAST CANCER
     Dosage: 338 MG, UNK
     Route: 042
     Dates: start: 19990114, end: 19990617
  7. TAMOXIFEN [Concomitant]
     Indication: BREAST CANCER
     Dosage: 20 MG, UNK
     Route: 048
  8. FEMARA [Concomitant]
     Indication: BREAST CANCER
     Dosage: 2.5 MG, UNK
     Route: 048
  9. TAXOTERE [Concomitant]
     Dosage: 148 MG, UNK
  10. XELODA [Concomitant]
     Dosage: 3920 MG, UNK
  11. ARIMIDEX [Suspect]

REACTIONS (5)
  - ASEPTIC NECROSIS BONE [None]
  - BREAST CANCER [None]
  - EXOSTOSIS [None]
  - MALIGNANT NEOPLASM PROGRESSION [None]
  - PRIMARY SEQUESTRUM [None]
